FAERS Safety Report 23869924 (Version 1)
Quarter: 2024Q2

REPORT INFORMATION
  Report Type: Spontaneous
  Country: US (occurrence: US)
  Receive Date: 20240517
  Receipt Date: 20240517
  Transmission Date: 20240716
  Serious: No
  Sender: FDA-Public Use
  Company Number: US-SA-2024SA150136

PATIENT
  Age: 71 Year
  Sex: Male

DRUGS (2)
  1. TOUJEO MAX [Suspect]
     Active Substance: INSULIN GLARGINE
     Indication: Type 2 diabetes mellitus
     Dosage: 28 UNITS IN THE MORNING AND 24 IN THE EVENING
     Route: 058
     Dates: start: 202404
  2. LANTUS [Concomitant]
     Active Substance: INSULIN GLARGINE
     Dosage: 34 UNITS IN THE MORNING AND 30 IN THE EVENING

REACTIONS (2)
  - Drooling [Not Recovered/Not Resolved]
  - Off label use [Unknown]

NARRATIVE: CASE EVENT DATE: 20240101
